FAERS Safety Report 8221297-6 (Version None)
Quarter: 2012Q1

REPORT INFORMATION
  Report Type: 
  Country: None (occurrence: None)
  Receive Date: 20120320
  Receipt Date: 20120315
  Transmission Date: 20120608
  Serious: Yes (Death, Other)
  Sender: FDA-Public Use
  Company Number: MX-SANOFI-AVENTIS-2012SA018205

PATIENT
  Age: 64 Year
  Sex: Male

DRUGS (6)
  1. DOCETAXEL [Suspect]
     Route: 042
     Dates: start: 20111026, end: 20111026
  2. DOCETAXEL [Suspect]
     Route: 042
     Dates: start: 20111101, end: 20111101
  3. PREDNISONE [Concomitant]
     Route: 065
     Dates: start: 20111026, end: 20111026
  4. DOCETAXEL [Suspect]
     Route: 042
     Dates: start: 20111026, end: 20111026
  5. DOCETAXEL [Suspect]
     Route: 042
     Dates: start: 20111101, end: 20111101
  6. PREDNISONE [Concomitant]
     Route: 065
     Dates: start: 20111101, end: 20111101

REACTIONS (2)
  - PNEUMONITIS [None]
  - RESPIRATORY DISORDER [None]
